FAERS Safety Report 20012848 (Version 1)
Quarter: 2021Q4

REPORT INFORMATION
  Report Type: Spontaneous
  Country: US (occurrence: US)
  Receive Date: 20211029
  Receipt Date: 20211029
  Transmission Date: 20220303
  Serious: No
  Sender: FDA-Public Use
  Company Number: US-BIOGEN-2021BI01062792

PATIENT
  Age: 66 Year
  Sex: Female
  Weight: 63 kg

DRUGS (1)
  1. TECFIDERA [Suspect]
     Active Substance: DIMETHYL FUMARATE
     Indication: Product used for unknown indication
     Route: 065

REACTIONS (24)
  - Blister [Unknown]
  - Irritable bowel syndrome [Unknown]
  - Tachyphrenia [Unknown]
  - Faeces discoloured [Unknown]
  - Extrasystoles [Unknown]
  - Faeces hard [Unknown]
  - Peripheral swelling [Unknown]
  - Intervertebral disc protrusion [Unknown]
  - Vertebral osteophyte [Unknown]
  - Multiple sclerosis relapse [Unknown]
  - Hiatus hernia [Unknown]
  - Decreased appetite [Unknown]
  - Hunger [Unknown]
  - Abdominal distension [Unknown]
  - Chest pain [Unknown]
  - Urinary tract infection [Unknown]
  - Gastritis [Unknown]
  - Weight decreased [Unknown]
  - Weight increased [Unknown]
  - Parkinson^s disease [Unknown]
  - Tremor [Unknown]
  - Rash [Unknown]
  - Diarrhoea [Unknown]
  - Nausea [Unknown]

NARRATIVE: CASE EVENT DATE: 20160201
